FAERS Safety Report 19448398 (Version 1)
Quarter: 2021Q2

REPORT INFORMATION
  Report Type: Report from Study
  Country: GB (occurrence: GB)
  Receive Date: 20210622
  Receipt Date: 20210622
  Transmission Date: 20210717
  Serious: Yes (Other)
  Sender: FDA-Public Use
  Company Number: GB-ACCORD-228892

PATIENT
  Age: 54 Year
  Sex: Female

DRUGS (132)
  1. TRASTUZUMAB/EMTANSINE [Suspect]
     Active Substance: ADO-TRASTUZUMAB EMTANSINE
     Indication: BREAST CANCER METASTATIC
     Route: 042
     Dates: start: 20180118
  2. TRASTUZUMAB. [Suspect]
     Active Substance: TRASTUZUMAB
     Indication: BREAST CANCER METASTATIC
     Route: 058
     Dates: start: 20150716, end: 20171222
  3. INHIXA [Concomitant]
     Active Substance: ENOXAPARIN SODIUM
     Route: 058
     Dates: start: 20201204, end: 20201210
  4. LINEZOLID. [Concomitant]
     Active Substance: LINEZOLID
     Indication: PYREXIA
     Route: 048
     Dates: start: 20181223, end: 20181227
  5. MORPHINE [Concomitant]
     Active Substance: MORPHINE
     Route: 048
     Dates: start: 20150516, end: 201611
  6. SODIUM CHLORIDE. [Concomitant]
     Active Substance: SODIUM CHLORIDE
     Route: 042
     Dates: start: 20201121, end: 20201122
  7. TEICOPLANIN [Concomitant]
     Active Substance: TEICOPLANIN
     Indication: CELLULITIS
     Route: 042
     Dates: start: 20200728, end: 20200803
  8. TINZAPARIN/TINZAPARIN SODIUM [Concomitant]
     Active Substance: TINZAPARIN SODIUM
     Indication: DEEP VEIN THROMBOSIS
     Dosage: 20000 U
     Route: 058
     Dates: start: 20190928
  9. ZANAMIVIR [Concomitant]
     Active Substance: ZANAMIVIR
     Indication: PYREXIA
     Route: 065
     Dates: start: 20191218, end: 20191219
  10. ACICLOVIR [Concomitant]
     Active Substance: ACYCLOVIR
     Route: 061
     Dates: start: 20161213, end: 20161218
  11. AMITRIPTYLINE [Concomitant]
     Active Substance: AMITRIPTYLINE
     Indication: HERPES ZOSTER
     Route: 048
     Dates: start: 20160727, end: 20160809
  12. AMOXICILLIN. [Concomitant]
     Active Substance: AMOXICILLIN
     Indication: OSTEOMYELITIS
     Route: 048
     Dates: start: 20170701, end: 20170706
  13. BENZYLPENICILLIN [Concomitant]
     Active Substance: PENICILLIN G
     Route: 042
     Dates: start: 20180912, end: 20180915
  14. CLARITHROMYCIN. [Concomitant]
     Active Substance: CLARITHROMYCIN
     Route: 048
     Dates: start: 20201121, end: 20201127
  15. SULFAMETHOXAZOLE/TRIMETHOPRIM [Concomitant]
     Active Substance: SULFAMETHOXAZOLE\TRIMETHOPRIM
     Indication: ABDOMINAL ABSCESS
     Route: 048
     Dates: start: 20181015, end: 20181022
  16. FLUCLOXACILLIN [Concomitant]
     Active Substance: FLUCLOXACILLIN
     Indication: PYREXIA
     Route: 048
     Dates: start: 20180910, end: 20180912
  17. ENOXAPARIN SODIUM. [Concomitant]
     Active Substance: ENOXAPARIN SODIUM
     Route: 058
     Dates: start: 20200728, end: 20200805
  18. ENOXAPARIN SODIUM. [Concomitant]
     Active Substance: ENOXAPARIN SODIUM
     Indication: THROMBOLYSIS
     Route: 058
     Dates: start: 20190610, end: 20190623
  19. LANSOPRAZOLE. [Concomitant]
     Active Substance: LANSOPRAZOLE
     Route: 048
  20. LINEZOLID. [Concomitant]
     Active Substance: LINEZOLID
     Route: 042
     Dates: start: 20200206, end: 20200212
  21. MEROPENEM. [Concomitant]
     Active Substance: MEROPENEM
     Indication: PYREXIA
     Route: 042
     Dates: start: 20180813, end: 20180814
  22. MEROPENEM. [Concomitant]
     Active Substance: MEROPENEM
     Route: 042
     Dates: start: 20201121, end: 20201121
  23. METRONIDAZOLE. [Concomitant]
     Active Substance: METRONIDAZOLE
     Indication: PYREXIA
     Route: 048
     Dates: start: 20180915, end: 20180921
  24. AMOXICILLIN. [Concomitant]
     Active Substance: AMOXICILLIN
     Route: 042
     Dates: start: 20191111, end: 20191115
  25. BLOOD/WHOLE [Concomitant]
     Route: 042
     Dates: start: 20170906, end: 20170906
  26. BLOOD/WHOLE [Concomitant]
     Dosage: 3 U?PRN (AS?NEEDED)
     Route: 042
     Dates: start: 20200501, end: 20200501
  27. BLOOD/WHOLE [Concomitant]
     Indication: ANAEMIA
     Dosage: 2 U PRN (AS?NEEDED)
     Route: 042
     Dates: start: 20160317, end: 20160317
  28. BLOOD/WHOLE [Concomitant]
     Dosage: 2 U
     Route: 042
     Dates: start: 20190611, end: 20190611
  29. DEXAMETHASONE. [Concomitant]
     Active Substance: DEXAMETHASONE
     Indication: COVID-19
     Route: 048
     Dates: start: 20151020, end: 20151103
  30. DOXYCYCLINE. [Concomitant]
     Active Substance: DOXYCYCLINE
     Indication: PNEUMONIA
     Route: 048
     Dates: start: 20191223, end: 20191230
  31. LANSOPRAZOLE. [Concomitant]
     Active Substance: LANSOPRAZOLE
     Route: 048
     Dates: start: 2001
  32. MACROGOL/MACROGOL STEARATE [Concomitant]
     Active Substance: POLYETHYLENE GLYCOLS
     Indication: CONSTIPATION
     Route: 048
     Dates: start: 20201122, end: 20201126
  33. ACIDEX [Concomitant]
     Indication: DYSPEPSIA
     Dosage: AS NEEDED
     Route: 048
     Dates: start: 20201123, end: 20201209
  34. PREDNISOLONE. [Concomitant]
     Active Substance: PREDNISOLONE
     Indication: PNEUMONIA
     Route: 048
     Dates: start: 20200625, end: 20200629
  35. BUSCOPAN [Concomitant]
     Active Substance: BUTYLSCOPOLAMINE BROMIDE
     Indication: CONSTIPATION
     Route: 048
     Dates: start: 20201205, end: 20201206
  36. MEROPENEM. [Concomitant]
     Active Substance: MEROPENEM
     Route: 042
     Dates: start: 20200622, end: 20200622
  37. BLOOD/WHOLE [Concomitant]
     Dosage: 2 U
     Route: 042
     Dates: start: 20200622, end: 20200622
  38. CLARITHROMYCIN. [Concomitant]
     Active Substance: CLARITHROMYCIN
     Route: 048
     Dates: start: 20191111, end: 20191118
  39. DENOSUMAB [Concomitant]
     Active Substance: DENOSUMAB
     Route: 058
     Dates: start: 20180118
  40. DEXAMETHASONE. [Concomitant]
     Active Substance: DEXAMETHASONE
     Route: 048
     Dates: start: 20151125, end: 20151202
  41. DOXYCYCLINE. [Concomitant]
     Active Substance: DOXYCYCLINE
     Indication: LOWER RESPIRATORY TRACT INFECTION
     Route: 048
     Dates: start: 20170112, end: 20170118
  42. HYOSCINE [Concomitant]
     Active Substance: SCOPOLAMINE
     Route: 048
     Dates: start: 20181222
  43. MAGNESIUM ASPARTATE/MAGNESIUM ASPARTATE HYDROCHLOR [Concomitant]
     Active Substance: MAGNESIUM ASPARTATE HYDROCHLORIDE
     Route: 048
     Dates: start: 20201124, end: 20201125
  44. MEROPENEM. [Concomitant]
     Active Substance: MEROPENEM
     Indication: SEPSIS
     Route: 042
     Dates: start: 20181222, end: 20181227
  45. PHOSPHATE SANDOZ EFFERVESCENT [Concomitant]
     Indication: HYPOPHOSPHATAEMIA
     Route: 048
     Dates: start: 20201209, end: 20201216
  46. PROMETHAZINE [Concomitant]
     Active Substance: PROMETHAZINE HYDROCHLORIDE
     Route: 048
  47. RIFAMPICIN [Concomitant]
     Active Substance: RIFAMPIN
     Indication: CELLULITIS
     Route: 048
     Dates: start: 20200212, end: 20200212
  48. ZOMETA [Concomitant]
     Active Substance: ZOLEDRONIC ACID
     Route: 042
     Dates: start: 20150827, end: 20160314
  49. ACICLOVIR [Concomitant]
     Active Substance: ACYCLOVIR
     Indication: ORAL HERPES
     Route: 048
     Dates: start: 20160727, end: 20160807
  50. AMOXICILLIN. [Concomitant]
     Active Substance: AMOXICILLIN
     Route: 048
     Dates: start: 20200626, end: 20200628
  51. CIPROFLOXACIN. [Concomitant]
     Active Substance: CIPROFLOXACIN
     Indication: PYREXIA
     Route: 048
     Dates: start: 20190205, end: 20190206
  52. AMOXICILLIN SODIUM/CLAVULANATE POTASSIUM [Concomitant]
     Active Substance: AMOXICILLIN\CLAVULANATE POTASSIUM
     Indication: CELLULITIS
     Route: 048
     Dates: start: 20190322, end: 2019
  53. DENOSUMAB [Concomitant]
     Active Substance: DENOSUMAB
     Route: 058
     Dates: start: 20170604, end: 20170613
  54. AMOXICILLIN. [Concomitant]
     Active Substance: AMOXICILLIN
     Route: 048
     Dates: start: 20191219, end: 20191221
  55. AMOXICILLIN. [Concomitant]
     Active Substance: AMOXICILLIN
     Indication: PNEUMONIA
     Route: 048
     Dates: start: 20190414
  56. BLOOD/WHOLE [Concomitant]
     Dosage: 2 U
     Route: 042
     Dates: start: 20161022, end: 20161022
  57. BLOOD/WHOLE [Concomitant]
     Dosage: 2 U?PRN (AS NEEDED)
     Route: 042
     Dates: start: 20191112, end: 20191112
  58. CLARITHROMYCIN. [Concomitant]
     Active Substance: CLARITHROMYCIN
     Route: 048
     Dates: start: 20200622, end: 20200628
  59. CLARITHROMYCIN. [Concomitant]
     Active Substance: CLARITHROMYCIN
     Indication: PYREXIA
     Route: 048
     Dates: start: 20190415
  60. CLARITHROMYCIN. [Concomitant]
     Active Substance: CLARITHROMYCIN
     Route: 048
     Dates: start: 20191219, end: 20191221
  61. DEXAMETHASONE. [Concomitant]
     Active Substance: DEXAMETHASONE
     Route: 048
     Dates: start: 20151111, end: 20151117
  62. DEXAMETHASONE. [Concomitant]
     Active Substance: DEXAMETHASONE
     Route: 048
     Dates: start: 20151008, end: 20151020
  63. FUROSEMIDE. [Concomitant]
     Active Substance: FUROSEMIDE
     Indication: LYMPHOEDEMA
     Route: 048
     Dates: start: 20151112, end: 20151118
  64. LISINOPRIL. [Concomitant]
     Active Substance: LISINOPRIL
     Route: 048
     Dates: start: 20161110
  65. LOPERAMIDE [Concomitant]
     Active Substance: LOPERAMIDE
     Indication: DIARRHOEA
     Route: 065
     Dates: start: 201804, end: 2019
  66. VANCOMYCIN [Concomitant]
     Active Substance: VANCOMYCIN
     Indication: CELLULITIS
     Route: 042
     Dates: start: 20200201, end: 20200206
  67. MORPHINE SULPHATE [Concomitant]
     Active Substance: MORPHINE SULFATE
     Route: 048
     Dates: start: 201611
  68. AMOXICILLIN. [Concomitant]
     Active Substance: AMOXICILLIN
     Route: 042
     Dates: start: 20191218, end: 20191219
  69. CHLORHEXIDINE [Concomitant]
     Active Substance: CHLORHEXIDINE
     Indication: STOMATITIS
     Route: 061
     Dates: start: 20201127
  70. HYDROCORTISONE. [Concomitant]
     Active Substance: HYDROCORTISONE
  71. DOXYCYCLINE. [Concomitant]
     Active Substance: DOXYCYCLINE
     Indication: PYREXIA
     Route: 048
     Dates: start: 20180815
  72. ENOXAPARIN SODIUM. [Concomitant]
     Active Substance: ENOXAPARIN SODIUM
     Route: 058
     Dates: start: 20200622, end: 20200623
  73. ENOXAPARIN SODIUM. [Concomitant]
     Active Substance: ENOXAPARIN SODIUM
     Route: 058
     Dates: start: 20200625, end: 20200625
  74. BLOOD/WHOLE [Concomitant]
     Dosage: 3 UNIT?AS NEEDED
     Route: 042
     Dates: start: 20200613, end: 20200613
  75. LETROZOLE. [Suspect]
     Active Substance: LETROZOLE
     Indication: BREAST CANCER METASTATIC
     Route: 048
     Dates: start: 201507, end: 20170427
  76. GABAPENTIN. [Concomitant]
     Active Substance: GABAPENTIN
     Route: 048
  77. PARACETAMOL [Concomitant]
     Active Substance: ACETAMINOPHEN
     Dosage: PRN (AS?NEEDED)
     Route: 048
     Dates: start: 201504
  78. BENZYDAMINE [Concomitant]
     Active Substance: BENZYDAMINE
     Indication: STOMATITIS
     Route: 061
     Dates: start: 20201121
  79. CETIRIZINE [Concomitant]
     Active Substance: CETIRIZINE HYDROCHLORIDE
     Route: 054
     Dates: start: 20201121
  80. AMOXICILLIN SODIUM/CLAVULANATE POTASSIUM [Concomitant]
     Active Substance: AMOXICILLIN\CLAVULANATE POTASSIUM
     Indication: PYREXIA
     Route: 048
     Dates: start: 20190205, end: 20190206
  81. DOXYCYCLINE. [Concomitant]
     Active Substance: DOXYCYCLINE
  82. IRON [Concomitant]
     Active Substance: IRON
     Indication: ANAEMIA
     Route: 048
     Dates: start: 20200804
  83. FLUCLOXACILLIN [Concomitant]
     Active Substance: FLUCLOXACILLIN
     Route: 042
     Dates: start: 20201209, end: 20201217
  84. FUROSEMIDE. [Concomitant]
     Active Substance: FUROSEMIDE
     Indication: LYMPHOEDEMA
     Route: 048
     Dates: start: 20200626, end: 20201220
  85. AMOXICILLIN. [Concomitant]
     Active Substance: AMOXICILLIN
     Route: 042
     Dates: start: 20200622, end: 20200626
  86. CLARITHROMYCIN. [Concomitant]
     Active Substance: CLARITHROMYCIN
     Indication: LOWER RESPIRATORY TRACT INFECTION
     Route: 048
     Dates: start: 20180701, end: 20180711
  87. DOXYCYCLINE. [Concomitant]
     Active Substance: DOXYCYCLINE
     Route: 048
     Dates: start: 20200728, end: 20200728
  88. DOXYCYCLINE. [Concomitant]
     Active Substance: DOXYCYCLINE
     Indication: CELLULITIS
     Route: 048
     Dates: start: 20190929, end: 20191005
  89. MAGNESIUM ASPARTATE/MAGNESIUM ASPARTATE HYDROCHLOR [Concomitant]
     Active Substance: MAGNESIUM ASPARTATE HYDROCHLORIDE
     Indication: HYPOMAGNESAEMIA
     Route: 048
     Dates: start: 20191111
  90. TAZOCIN [Concomitant]
     Active Substance: PIPERACILLIN SODIUM\TAZOBACTAM SODIUM
     Indication: CELLULITIS
     Route: 042
     Dates: start: 20200202, end: 20200206
  91. BLOOD/WHOLE [Concomitant]
     Dosage: 2 UNIT?PRN (AS?NEEDED)
     Route: 042
     Dates: start: 20181022, end: 20181022
  92. DEXAMETHASONE. [Concomitant]
     Active Substance: DEXAMETHASONE
     Route: 048
     Dates: start: 20151104, end: 20151110
  93. DIAZEPAM. [Concomitant]
     Active Substance: DIAZEPAM
     Indication: MUSCULOSKELETAL STIFFNESS
  94. FLUCLOXACILLIN [Concomitant]
     Active Substance: FLUCLOXACILLIN
     Route: 048
     Dates: start: 20180915, end: 20180921
  95. GABAPENTIN. [Concomitant]
     Active Substance: GABAPENTIN
     Route: 048
     Dates: start: 20151231
  96. MEROPENEM. [Concomitant]
     Active Substance: MEROPENEM
     Route: 042
     Dates: start: 20200728, end: 20200728
  97. AMOXICILLIN. [Concomitant]
     Active Substance: AMOXICILLIN
     Route: 048
     Dates: start: 20201122, end: 20201127
  98. AMOXICILLIN. [Concomitant]
     Active Substance: AMOXICILLIN
     Route: 042
     Dates: start: 20201121, end: 20201221
  99. BLOOD/WHOLE [Concomitant]
     Dosage: 3 U
     Route: 042
     Dates: start: 20200718, end: 20200718
  100. CLARITHROMYCIN. [Concomitant]
     Active Substance: CLARITHROMYCIN
     Route: 048
     Dates: start: 20201024, end: 20201027
  101. CLINDAMYCIN. [Concomitant]
     Active Substance: CLINDAMYCIN
     Route: 042
     Dates: start: 20200206, end: 20200212
  102. DOXYCYCLINE. [Concomitant]
     Active Substance: DOXYCYCLINE
     Indication: PYREXIA
     Route: 048
     Dates: start: 20180814, end: 20180814
  103. EXEMESTANE. [Suspect]
     Active Substance: EXEMESTANE
     Indication: BREAST CANCER METASTATIC
     Route: 048
     Dates: start: 20170428, end: 20180110
  104. FLUCLOXACILLIN [Concomitant]
     Active Substance: FLUCLOXACILLIN
     Indication: WOUND INFECTION
     Route: 042
     Dates: start: 20180912, end: 20180915
  105. LEVOTHYROXINE. [Concomitant]
     Active Substance: LEVOTHYROXINE
     Indication: HYPOTHYROIDISM
     Route: 048
     Dates: start: 20200311
  106. LINEZOLID. [Concomitant]
     Active Substance: LINEZOLID
     Indication: CELLULITIS
     Route: 042
     Dates: start: 20190611, end: 20190621
  107. METRONIDAZOLE. [Concomitant]
     Active Substance: METRONIDAZOLE
     Indication: OSTEOMYELITIS
     Route: 048
     Dates: start: 20170701, end: 20170708
  108. NAPROXEN. [Concomitant]
     Active Substance: NAPROXEN
     Route: 048
  109. SODIUM CHLORIDE. [Concomitant]
     Active Substance: SODIUM CHLORIDE
  110. TRIMETHOPRIM. [Concomitant]
     Active Substance: TRIMETHOPRIM
     Indication: URINARY TRACT INFECTION
     Route: 048
     Dates: start: 20201207, end: 20201210
  111. DIAZEPAM. [Concomitant]
     Active Substance: DIAZEPAM
     Indication: BACK PAIN
     Route: 048
     Dates: start: 20180105
  112. FLUCLOXACILLIN [Concomitant]
     Active Substance: FLUCLOXACILLIN
     Indication: CELLULITIS
     Route: 042
     Dates: start: 20020130, end: 20200202
  113. MEROPENEM. [Concomitant]
     Active Substance: MEROPENEM
     Indication: PNEUMONIA
     Route: 042
     Dates: start: 20190205, end: 20190205
  114. METRONIDAZOLE. [Concomitant]
     Active Substance: METRONIDAZOLE
     Indication: WOUND INFECTION
     Route: 048
     Dates: start: 20201209, end: 20201217
  115. FLUCLOXACILLIN [Concomitant]
     Active Substance: FLUCLOXACILLIN
     Indication: WOUND INFECTION
     Route: 042
  116. AMOXICILLIN. [Concomitant]
     Active Substance: AMOXICILLIN
     Indication: LOWER RESPIRATORY TRACT INFECTION
     Route: 048
     Dates: start: 20180701, end: 20180711
  117. AMOXICILLIN. [Concomitant]
     Active Substance: AMOXICILLIN
     Route: 048
     Dates: start: 20191115, end: 20191118
  118. AMOXICILLIN. [Concomitant]
     Active Substance: AMOXICILLIN
     Route: 042
     Dates: start: 20201024, end: 20201026
  119. DEXAMETHASONE. [Concomitant]
     Active Substance: DEXAMETHASONE
     Route: 048
     Dates: start: 20151118, end: 20151124
  120. DEXAMETHASONE. [Concomitant]
     Active Substance: DEXAMETHASONE
     Route: 048
     Dates: start: 20201129, end: 20201208
  121. MORPHINE [Concomitant]
     Active Substance: MORPHINE
     Route: 048
     Dates: start: 20171224
  122. COLECALCIFEROL [Concomitant]
     Active Substance: CHOLECALCIFEROL
     Route: 048
     Dates: start: 20150827
  123. CITALOPRAM [Concomitant]
     Active Substance: CITALOPRAM HYDROBROMIDE
     Route: 048
     Dates: start: 2005
  124. CLARITHROMYCIN. [Concomitant]
     Active Substance: CLARITHROMYCIN
     Indication: SEPSIS
     Route: 042
     Dates: start: 20190611, end: 20190611
  125. CLINDAMYCIN. [Concomitant]
     Active Substance: CLINDAMYCIN
     Indication: CELLULITIS
     Route: 042
     Dates: start: 20190611, end: 20190621
  126. FLUCLOXACILLIN [Concomitant]
     Active Substance: FLUCLOXACILLIN
     Indication: PARONYCHIA
     Route: 048
     Dates: start: 20161110, end: 20161117
  127. ENOXAPARIN SODIUM. [Concomitant]
     Active Substance: ENOXAPARIN SODIUM
     Route: 058
     Dates: start: 20201121, end: 20201203
  128. MEROPENEM. [Concomitant]
     Active Substance: MEROPENEM
     Route: 042
     Dates: start: 20190610, end: 20190617
  129. TAZOCIN [Concomitant]
     Active Substance: PIPERACILLIN SODIUM\TAZOBACTAM SODIUM
     Indication: PNEUMONIA
     Route: 042
     Dates: start: 20191221, end: 20191227
  130. FUROSEMIDE. [Concomitant]
     Active Substance: FUROSEMIDE
     Route: 048
     Dates: start: 20200622, end: 20200623
  131. AMOXICILLIN. [Concomitant]
     Active Substance: AMOXICILLIN
     Route: 048
     Dates: start: 20201026, end: 20201027
  132. CLARITHROMYCIN. [Concomitant]
     Active Substance: CLARITHROMYCIN
     Route: 048
     Dates: start: 20200728, end: 20200803

REACTIONS (1)
  - Hypokalaemia [Recovered/Resolved]

NARRATIVE: CASE EVENT DATE: 20201217
